FAERS Safety Report 10241367 (Version 1)
Quarter: 2014Q2

REPORT INFORMATION
  Report Type: Spontaneous
  Country: GB (occurrence: GB)
  Receive Date: 20140617
  Receipt Date: 20140617
  Transmission Date: 20141212
  Serious: Yes (Other)
  Sender: FDA-Public Use
  Company Number: GB-WATSON-2014-12563

PATIENT
  Age: 32 Year
  Sex: Female

DRUGS (2)
  1. TRIMETHOPRIM (UNKNOWN) [Suspect]
     Indication: URINARY TRACT INFECTION
     Dosage: 200MG, BID
     Route: 048
     Dates: start: 20140506, end: 20140507
  2. CITALOPRAM [Concomitant]
     Indication: DEPRESSION
     Dosage: 30 MG, DAILY
     Route: 065

REACTIONS (1)
  - Depressed mood [Not Recovered/Not Resolved]
